FAERS Safety Report 13226756 (Version 3)
Quarter: 2018Q2

REPORT INFORMATION
  Report Type: Report from Study
  Country: ZA (occurrence: ZA)
  Receive Date: 20170213
  Receipt Date: 20180406
  Transmission Date: 20180711
  Serious: Yes (Death, Hospitalization)
  Sender: FDA-Public Use
  Company Number: PHHY2017ZA020364

PATIENT
  Age: 82 Year
  Sex: Male

DRUGS (2)
  1. CO-TAREG [Suspect]
     Active Substance: HYDROCHLOROTHIAZIDE\VALSARTAN
     Indication: HYPERTENSION
     Dosage: 1 DF (HYDROCHLOROTHIAZIDE 12.5, VALSARTAN 80 MG)
     Route: 048
     Dates: start: 20160824, end: 201712
  2. TAREG [Suspect]
     Active Substance: VALSARTAN
     Indication: HYPERTENSION
     Dosage: 80 MG, UNK
     Route: 048
     Dates: start: 201801

REACTIONS (4)
  - Respiratory failure [Unknown]
  - Cardiac failure [Unknown]
  - Myocardial infarction [Fatal]
  - Intracardiac thrombus [Unknown]

NARRATIVE: CASE EVENT DATE: 20180225
